FAERS Safety Report 6528614-3 (Version None)
Quarter: 2010Q1

REPORT INFORMATION
  Report Type: 
  Country: None (occurrence: None)
  Receive Date: 20100105
  Receipt Date: 20100105
  Transmission Date: 20100710
  Serious: No
  Sender: FDA-Public Use
  Company Number: None

PATIENT
  Sex: Female
  Weight: 58.514 kg

DRUGS (1)
  1. MONISTAT [Suspect]
     Indication: FUNGAL INFECTION
     Dosage: ONE OVULE ONCE VAG
     Route: 067
     Dates: start: 20090103, end: 20090103

REACTIONS (4)
  - DYSURIA [None]
  - GENITAL BURNING SENSATION [None]
  - GENITAL PAIN [None]
  - GENITAL SWELLING [None]
